FAERS Safety Report 8165937-9 (Version None)
Quarter: 2012Q1

REPORT INFORMATION
  Report Type: 
  Country: None (occurrence: None)
  Receive Date: 20120227
  Receipt Date: 20111209
  Transmission Date: 20120608
  Serious: No
  Sender: FDA-Public Use
  Company Number: US-MYLANLABS-2011S1024159

PATIENT
  Age: 19 Year
  Sex: Female
  Weight: 68.04 kg

DRUGS (3)
  1. AMNESTEEM [Suspect]
     Indication: ACNE
     Route: 048
     Dates: start: 20110810, end: 20111121
  2. ORTHO TRI-CYCLEN [Concomitant]
  3. CYMBALTA [Concomitant]

REACTIONS (2)
  - DEPRESSION [None]
  - ANXIETY [None]
